FAERS Safety Report 14937346 (Version 3)
Quarter: 2018Q4

REPORT INFORMATION
  Report Type: Spontaneous
  Country: CZ (occurrence: CZ)
  Receive Date: 20180525
  Receipt Date: 20181130
  Transmission Date: 20190204
  Serious: Yes (Death, Hospitalization, Other)
  Sender: FDA-Public Use
  Company Number: CZ-ACCORD-067376

PATIENT
  Age: 39 Year
  Sex: Female

DRUGS (3)
  1. TOPOTECAN [Suspect]
     Active Substance: TOPOTECAN HYDROCHLORIDE
     Indication: OVARIAN CANCER
     Route: 042
  2. CARBOPLATIN. [Suspect]
     Active Substance: CARBOPLATIN
     Indication: OVARIAN CANCER
     Route: 042
  3. PACLITAXEL/PACLITAXEL LIPOSOME [Suspect]
     Active Substance: PACLITAXEL
     Indication: OVARIAN CANCER
     Route: 042

REACTIONS (6)
  - Malignant neoplasm progression [Fatal]
  - Ileus [Recovered/Resolved]
  - Cancer pain [Fatal]
  - Spinal pain [Not Recovered/Not Resolved]
  - Neutropenia [Unknown]
  - Neuropathy peripheral [Unknown]
